FAERS Safety Report 12117750 (Version 1)
Quarter: 2016Q1

REPORT INFORMATION
  Report Type: Spontaneous
  Country: US (occurrence: US)
  Receive Date: 20160226
  Receipt Date: 20160226
  Transmission Date: 20160526
  Serious: Yes (Hospitalization, Other)
  Sender: FDA-Public Use
  Company Number: US-PFIZER INC-2016111367

PATIENT
  Age: 41 Year
  Sex: Female
  Weight: 54.42 kg

DRUGS (3)
  1. REMODULIN [Suspect]
     Active Substance: TREPROSTINIL
     Indication: PULMONARY ARTERIAL HYPERTENSION
     Dosage: 0.049 UG/KG, UNK
     Route: 042
     Dates: start: 20140107
  2. REVATIO [Suspect]
     Active Substance: SILDENAFIL CITRATE
     Dosage: UNK
  3. LETAIRIS [Suspect]
     Active Substance: AMBRISENTAN
     Dosage: 10 MG, 1X/DAY
     Dates: start: 20130705

REACTIONS (11)
  - Fluid overload [Unknown]
  - Thrombosis in device [Unknown]
  - Renal impairment [Not Recovered/Not Resolved]
  - Blood urea increased [Unknown]
  - Pulmonary hypertension [Unknown]
  - Cystitis [Unknown]
  - Diarrhoea [Unknown]
  - Blood disorder [Unknown]
  - Fluid retention [Unknown]
  - Sinusitis [Unknown]
  - Haemolysis [Unknown]

NARRATIVE: CASE EVENT DATE: 2015
